FAERS Safety Report 14432232 (Version 1)
Quarter: 2018Q1

REPORT INFORMATION
  Report Type: Spontaneous
  Country: US (occurrence: US)
  Receive Date: 20180124
  Receipt Date: 20180124
  Transmission Date: 20180509
  Serious: Yes (Other)
  Sender: FDA-Public Use
  Company Number: US-DSJP-DSU-2017-148100

PATIENT

DRUGS (1)
  1. BENICAR [Suspect]
     Active Substance: OLMESARTAN MEDOXOMIL
     Indication: HYPERTENSION
     Dosage: 40 MG, QD
     Route: 048
     Dates: start: 20110708, end: 20170928

REACTIONS (8)
  - Polyp [Unknown]
  - Haemorrhoids [Unknown]
  - Reactive gastropathy [Unknown]
  - Gastrooesophageal reflux disease [Unknown]
  - Gastric ulcer [Unknown]
  - Rectal polyp [Unknown]
  - Diverticulum intestinal [Unknown]
  - Sprue-like enteropathy [Recovered/Resolved]

NARRATIVE: CASE EVENT DATE: 20161006
